FAERS Safety Report 10286423 (Version 1)
Quarter: 2014Q3

REPORT INFORMATION
  Report Type: Spontaneous
  Country: US (occurrence: US)
  Receive Date: 20140709
  Receipt Date: 20140709
  Transmission Date: 20150326
  Serious: No
  Sender: FDA-Public Use
  Company Number: US-PFIZER INC-2014187967

PATIENT
  Age: 53 Year
  Sex: Female
  Weight: 63.49 kg

DRUGS (1)
  1. ADVIL [Suspect]
     Active Substance: IBUPROFEN
     Indication: ARTHRITIS
     Dosage: 200 MG, ONCE A DAY
     Dates: start: 20140630, end: 20140703

REACTIONS (2)
  - Dyspnoea [Unknown]
  - Panic attack [Unknown]

NARRATIVE: CASE EVENT DATE: 20140702
